FAERS Safety Report 13761255 (Version 1)
Quarter: 2017Q3

REPORT INFORMATION
  Report Type: Spontaneous
  Country: GB (occurrence: GB)
  Receive Date: 20170717
  Receipt Date: 20170717
  Transmission Date: 20171127
  Serious: Yes (Other)
  Sender: FDA-Public Use
  Company Number: GB-MYLANLABS-2017M1042209

PATIENT

DRUGS (4)
  1. TESTOSTERONE. [Suspect]
     Active Substance: TESTOSTERONE
     Indication: PHYSICAL FITNESS TRAINING
     Dosage: DEPOTS
     Route: 065
  2. CYANOCOBALAMIN. [Suspect]
     Active Substance: CYANOCOBALAMIN
     Indication: PHYSICAL FITNESS TRAINING
     Route: 030
  3. LIOTHYRONINE [Suspect]
     Active Substance: LIOTHYRONINE
     Indication: PHYSICAL FITNESS TRAINING
     Route: 065
  4. INSULIN [Suspect]
     Active Substance: INSULIN NOS
     Indication: PHYSICAL FITNESS TRAINING
     Route: 065

REACTIONS (10)
  - Joint dislocation [Unknown]
  - Generalised tonic-clonic seizure [Unknown]
  - Haemangioma of liver [Unknown]
  - Humerus fracture [Unknown]
  - Gynaecomastia [Unknown]
  - Glomerulonephritis [Unknown]
  - Thyroid function test abnormal [Unknown]
  - Cellulitis [Unknown]
  - Drug abuse [Unknown]
  - Hormone level abnormal [Unknown]
